FAERS Safety Report 14554055 (Version 1)
Quarter: 2018Q1

REPORT INFORMATION
  Report Type: Spontaneous
  Country: US (occurrence: US)
  Receive Date: 20180220
  Receipt Date: 20180220
  Transmission Date: 20180509
  Serious: Yes (Other)
  Sender: FDA-Public Use
  Company Number: US-IMPAX LABORATORIES, INC-2018-IPXL-00438

PATIENT
  Age: 53 Year
  Sex: Male

DRUGS (37)
  1. OCTREOTIDE. [Suspect]
     Active Substance: OCTREOTIDE
     Indication: ACROMEGALY
     Dosage: 20 MG,  EVERY 28 DAYS
     Route: 030
  2. INSULIN DETEMIR [Suspect]
     Active Substance: INSULIN DETEMIR
     Dosage: 60 UNITS Q.H.S.
     Route: 065
  3. INSULIN DETEMIR [Suspect]
     Active Substance: INSULIN DETEMIR
     Dosage: 80 UNITS Q.A.M.
     Route: 065
  4. INSULIN DETEMIR [Suspect]
     Active Substance: INSULIN DETEMIR
     Dosage: 70?90 UNITS B.I.D.
     Route: 065
  5. INSULIN ASPART [Suspect]
     Active Substance: INSULIN ASPART
     Dosage: 15, 15, 20 UNITS WITH MEALS AND SLIDING SCALE
     Route: 065
  6. INSULIN DETEMIR [Suspect]
     Active Substance: INSULIN DETEMIR
     Dosage: 80 UNITS Q.A.M.
     Route: 065
  7. INSULIN ASPART [Suspect]
     Active Substance: INSULIN ASPART
     Dosage: 20, 15, 25, 10 UNITS WITH MEALS, AT BEDTIME, AND ON A SLIDING SCALE
     Route: 065
  8. INSULIN ASPART [Suspect]
     Active Substance: INSULIN ASPART
     Dosage: 30 T.I.D. UNITS WITH MEALS AND ON A SLIDING SCALE
     Route: 065
  9. INSULIN ASPART [Suspect]
     Active Substance: INSULIN ASPART
     Dosage: 35 T.I.D. UNITS WITH MEALS AND ON A SLIDING SCALE
     Route: 065
  10. INSULIN ASPART [Suspect]
     Active Substance: INSULIN ASPART
     Dosage: 10?35 T.I.D. UNITS WITH MEALS AND ON A SLIDING SCALE
     Route: 065
  11. INSULIN ASPART [Suspect]
     Active Substance: INSULIN ASPART
     Dosage: UNK
  12. PIOGLITAZONE. [Suspect]
     Active Substance: PIOGLITAZONE
     Indication: TYPE 2 DIABETES MELLITUS
     Dosage: 45 MG, QD
     Route: 065
  13. INSULIN DETEMIR [Suspect]
     Active Substance: INSULIN DETEMIR
     Dosage: 60 UNITS Q.H.S.
     Route: 065
  14. INSULIN DETEMIR [Suspect]
     Active Substance: INSULIN DETEMIR
     Dosage: 50 UNITS Q.A.M.
     Route: 065
  15. INSULIN DETEMIR [Suspect]
     Active Substance: INSULIN DETEMIR
     Dosage: 36?85 UNITS B.I.D.
     Route: 065
  16. INSULIN ASPART [Suspect]
     Active Substance: INSULIN ASPART
     Dosage: 20 T.I.D. UNITS WITH MEALS AND ON A SLIDING SCALE
     Route: 065
  17. PASIREOTIDE. [Suspect]
     Active Substance: PASIREOTIDE
     Indication: ACROMEGALY
     Dosage: 40 MG, EVERY 28 DAYS
     Route: 030
  18. INSULIN DETEMIR [Suspect]
     Active Substance: INSULIN DETEMIR
     Dosage: 30 UNITS Q.A.M.
     Route: 065
  19. INSULIN DETEMIR [Suspect]
     Active Substance: INSULIN DETEMIR
     Dosage: 35 UNITS Q.A.M
     Route: 065
  20. INSULIN DETEMIR [Suspect]
     Active Substance: INSULIN DETEMIR
     Dosage: 50 UNITS Q.H.S.
     Route: 065
  21. INSULIN DETEMIR [Suspect]
     Active Substance: INSULIN DETEMIR
     Dosage: 60 UNITS Q.H.S.
     Route: 065
  22. INSULIN DETEMIR [Suspect]
     Active Substance: INSULIN DETEMIR
     Dosage: 40?70 UNITS Q.H.S
     Route: 065
  23. INSULIN DETEMIR [Suspect]
     Active Substance: INSULIN DETEMIR
     Dosage: 85 UNITS B.I.D.
     Route: 065
  24. INSULIN DETEMIR [Suspect]
     Active Substance: INSULIN DETEMIR
     Dosage: UNK
  25. INSULIN ASPART [Suspect]
     Active Substance: INSULIN ASPART
     Indication: TYPE 2 DIABETES MELLITUS
     Dosage: 10 UNITS Q.D. WITH DINNER
     Route: 065
  26. INSULIN ASPART [Suspect]
     Active Substance: INSULIN ASPART
     Dosage: 20, 20, 25 UNITS WITH MEALS AND SLIDING SCALE
     Route: 065
  27. OCTREOTIDE. [Suspect]
     Active Substance: OCTREOTIDE
     Dosage: 30 MG,  EVERY 28 DAYS
     Route: 030
  28. INSULIN DETEMIR [Suspect]
     Active Substance: INSULIN DETEMIR
     Dosage: 30 UNITS Q.D.
     Route: 065
  29. INSULIN DETEMIR [Suspect]
     Active Substance: INSULIN DETEMIR
     Dosage: 45 UNITS Q.H.S.
     Route: 065
  30. INSULIN ASPART [Suspect]
     Active Substance: INSULIN ASPART
     Dosage: 8-24 T.I.D. UNITS WITH MEALS AND ON A SLIDING SCALE
     Route: 065
  31. GLIPIZIDE. [Suspect]
     Active Substance: GLIPIZIDE
     Indication: TYPE 2 DIABETES MELLITUS
     Dosage: 10 MG, BID
     Route: 065
  32. METFORMIN HYDROCHLORIDE ER [Suspect]
     Active Substance: METFORMIN HYDROCHLORIDE
     Indication: TYPE 2 DIABETES MELLITUS
     Dosage: 1000 MG, BID
     Route: 065
  33. PASIREOTIDE. [Suspect]
     Active Substance: PASIREOTIDE
     Dosage: 60 MG, 28 DAYS
     Route: 030
  34. INSULIN DETEMIR [Suspect]
     Active Substance: INSULIN DETEMIR
     Indication: TYPE 2 DIABETES MELLITUS
     Dosage: 25 UNITS Q.D.
     Route: 065
  35. INSULIN DETEMIR [Suspect]
     Active Substance: INSULIN DETEMIR
     Dosage: 35 UNITS Q.A.M
     Route: 065
  36. INSULIN DETEMIR [Suspect]
     Active Substance: INSULIN DETEMIR
     Dosage: 45?60 UNITS Q.A.M.
     Route: 065
  37. INSULIN DETEMIR [Suspect]
     Active Substance: INSULIN DETEMIR
     Dosage: 60 UNITS Q.H.S.
     Route: 065

REACTIONS (3)
  - Hyperglycaemia [Recovered/Resolved]
  - Acromegaly [Recovering/Resolving]
  - Insulin-requiring type 2 diabetes mellitus [Recovering/Resolving]
